FAERS Safety Report 23524030 (Version 1)
Quarter: 2024Q1

REPORT INFORMATION
  Report Type: Spontaneous
  Country: SE (occurrence: SE)
  Receive Date: 20240214
  Receipt Date: 20240214
  Transmission Date: 20240410
  Serious: Yes (Life-Threatening, Hospitalization, Other)
  Sender: FDA-Public Use
  Company Number: None

PATIENT
  Age: 55 Year
  Sex: Female

DRUGS (2)
  1. KEYTRUDA [Suspect]
     Active Substance: PEMBROLIZUMAB
     Dosage: 400 MG EVERY 6 WEEKS
     Route: 042
     Dates: start: 20230526, end: 20231012
  2. PREDNISOLONE [Concomitant]
     Active Substance: PREDNISOLONE

REACTIONS (3)
  - Colitis [Recovering/Resolving]
  - Enterostomy [Unknown]
  - Colectomy [Unknown]

NARRATIVE: CASE EVENT DATE: 20231127
